FAERS Safety Report 9190147 (Version 1)
Quarter: 2013Q1

REPORT INFORMATION
  Report Type: Spontaneous
  Country: US (occurrence: None)
  Receive Date: 20130325
  Receipt Date: 20130325
  Transmission Date: 20140127
  Serious: Yes (Life-Threatening, Other)
  Sender: FDA-Public Use
  Company Number: None

PATIENT
  Age: 49 Year
  Sex: Female
  Weight: 87.09 kg

DRUGS (1)
  1. DIVALPROEX [Suspect]
     Indication: CONVULSION
     Dosage: 250 MG. TB 3X DAY
     Dates: start: 20130214, end: 20130308

REACTIONS (4)
  - Anxiety [None]
  - Abnormal behaviour [None]
  - Convulsion [None]
  - Anger [None]
